FAERS Safety Report 19098329 (Version 1)
Quarter: 2021Q2

REPORT INFORMATION
  Report Type: Spontaneous
  Country: DZ (occurrence: DZ)
  Receive Date: 20210406
  Receipt Date: 20210406
  Transmission Date: 20210717
  Serious: Yes (Other)
  Sender: FDA-Public Use
  Company Number: DZ-GLAXOSMITHKLINE-DZCH2021017747

PATIENT
  Age: 65 Year
  Sex: Male

DRUGS (4)
  1. CHIBRO CADRON [Concomitant]
     Active Substance: DEXAMETHASONE SODIUM PHOSPHATE\NEOMYCIN SULFATE
     Indication: PRODUCT USED FOR UNKNOWN INDICATION
     Dosage: 1 DROP 6 TIMES A DAY IN RIGHT EYE
     Route: 065
     Dates: start: 20210120, end: 20210214
  2. CHIBRO CADRON [Concomitant]
     Active Substance: DEXAMETHASONE SODIUM PHOSPHATE\NEOMYCIN SULFATE
     Dosage: 1 DROP 3 TIMES A DAY IN RIGHT EYE FOR 15 DAYS
     Route: 065
     Dates: start: 20210214
  3. CHIBRO CADRON [Concomitant]
     Active Substance: DEXAMETHASONE SODIUM PHOSPHATE\NEOMYCIN SULFATE
     Dosage: 1 DROP 2 TIMES A DAY FOR 15 DAYS
     Route: 065
     Dates: end: 20210314
  4. DICLOFENAC SODIUM. [Suspect]
     Active Substance: DICLOFENAC SODIUM
     Indication: PRODUCT USED FOR UNKNOWN INDICATION
     Dosage: 1 DROP, BID
     Route: 047
     Dates: start: 20210214, end: 20210228

REACTIONS (1)
  - Ulcerative keratitis [Recovered/Resolved]
